FAERS Safety Report 15412860 (Version 4)
Quarter: 2018Q4

REPORT INFORMATION
  Report Type: Spontaneous
  Country: US (occurrence: US)
  Receive Date: 20180921
  Receipt Date: 20181102
  Transmission Date: 20190204
  Serious: Yes (Hospitalization, Other)
  Sender: FDA-Public Use
  Company Number: US-PFIZER INC-2018376851

PATIENT
  Age: 38 Year
  Sex: Female

DRUGS (2)
  1. BUPIVACAINE HCL [Suspect]
     Active Substance: BUPIVACAINE HYDROCHLORIDE
     Indication: BLADDER IRRIGATION
     Dosage: 1 DF, CYCLIC (4 TIMES A WEEK)
     Route: 043
  2. BUPIVACAINE HCL [Suspect]
     Active Substance: BUPIVACAINE HYDROCHLORIDE
     Indication: CYSTITIS INTERSTITIAL

REACTIONS (3)
  - Product deposit [Unknown]
  - Poor quality product administered [Unknown]
  - Bladder pain [Unknown]
